FAERS Safety Report 7091259-3 (Version None)
Quarter: 2010Q4

REPORT INFORMATION
  Report Type: 
  Country: None (occurrence: None)
  Receive Date: 20101101
  Receipt Date: 20101015
  Transmission Date: 20110411
  Serious: Yes (Other)
  Sender: FDA-Public Use
  Company Number: ACO_02816_2010

PATIENT
  Sex: Female
  Weight: 48.9885 kg

DRUGS (9)
  1. AMPYRA [Suspect]
     Indication: GAIT DISTURBANCE
     Dosage: (10 MG BID ORAL), (10 MG QD, PRESCRIBED FOR ONE WEEK)
     Route: 048
     Dates: start: 20101004, end: 20101001
  2. AMPYRA [Suspect]
     Indication: HEADACHE
     Dosage: (10 MG BID ORAL), (10 MG QD, PRESCRIBED FOR ONE WEEK)
     Route: 048
     Dates: start: 20101004, end: 20101001
  3. AMPYRA [Suspect]
     Indication: GAIT DISTURBANCE
     Dosage: (10 MG BID ORAL), (10 MG QD, PRESCRIBED FOR ONE WEEK)
     Route: 048
     Dates: start: 20101001
  4. AMPYRA [Suspect]
     Indication: HEADACHE
     Dosage: (10 MG BID ORAL), (10 MG QD, PRESCRIBED FOR ONE WEEK)
     Route: 048
     Dates: start: 20101001
  5. COPAXONE /03175301/ [Concomitant]
  6. LYRICA [Concomitant]
  7. CARBAMAZEPINE [Concomitant]
  8. ZOLPIDEM [Concomitant]
  9. ARICEPT [Concomitant]

REACTIONS (6)
  - DIZZINESS [None]
  - INFLUENZA [None]
  - INITIAL INSOMNIA [None]
  - MULTIPLE SCLEROSIS RELAPSE [None]
  - PARAESTHESIA [None]
  - VISUAL IMPAIRMENT [None]
